FAERS Safety Report 9921268 (Version 1)
Quarter: 2014Q1

REPORT INFORMATION
  Report Type: Report from Study
  Country: US (occurrence: US)
  Receive Date: 20140225
  Receipt Date: 20140225
  Transmission Date: 20141002
  Serious: Yes (Hospitalization)
  Sender: FDA-Public Use
  Company Number: US-ROCHE-1349811

PATIENT
  Age: 52 Year
  Sex: Male

DRUGS (13)
  1. BEVACIZUMAB [Suspect]
     Indication: CLEAR CELL RENAL CELL CARCINOMA
     Route: 042
     Dates: start: 20131219
  2. BKM120 (PI3K INHIBITOR) [Suspect]
     Indication: RENAL CELL CARCINOMA
     Dosage: FOR 28 DAYS DAYS OF 28 DAY CYCLE
     Route: 048
     Dates: start: 20131219
  3. NIVOLUMAB [Suspect]
     Indication: CLEAR CELL RENAL CELL CARCINOMA
     Route: 042
     Dates: start: 20130618, end: 20131119
  4. ZOLPIDEM [Concomitant]
     Route: 065
     Dates: start: 20110719
  5. FONDAPARINUX SODIUM [Concomitant]
     Route: 065
     Dates: start: 20110927
  6. PANTOPRAZOLE [Concomitant]
  7. ZOMETA [Concomitant]
     Route: 065
     Dates: start: 20120129
  8. CYANOCOBALAMIN [Concomitant]
     Route: 065
     Dates: start: 20120529
  9. CHANTIX [Concomitant]
     Route: 065
     Dates: start: 20130924
  10. ASCORBIC ACID [Concomitant]
  11. ESCITALOPRAM [Concomitant]
     Route: 065
     Dates: start: 201109
  12. CRESTOR [Concomitant]
     Route: 065
     Dates: start: 201204
  13. CLONAZEPAM [Concomitant]
     Route: 065
     Dates: start: 20110927

REACTIONS (2)
  - Pyrexia [Unknown]
  - Rash [Unknown]
